FAERS Safety Report 4879044-1 (Version None)
Quarter: 2006Q1

REPORT INFORMATION
  Report Type: 
  Country: None (occurrence: None)
  Receive Date: 20060112
  Receipt Date: 20060106
  Transmission Date: 20060701
  Serious: Yes (Other)
  Sender: FDA-Public Use
  Company Number: GB-BRISTOL-MYERS SQUIBB COMPANY-13238092

PATIENT
  Age: 38 Year
  Sex: Male
  Weight: 67 kg

DRUGS (7)
  1. EFAVIRENZ [Suspect]
     Indication: HIV INFECTION
     Route: 048
     Dates: start: 20051110, end: 20051123
  2. LAMIVUDINE [Suspect]
     Indication: HIV INFECTION
     Route: 048
     Dates: start: 20051110
  3. TENOFOVIR DISOPROXIL FUMARATE [Suspect]
     Indication: HIV INFECTION
     Route: 048
     Dates: start: 20051110
  4. AZITHROMYCIN [Concomitant]
     Indication: CHLAMYDIAL INFECTION
     Route: 048
     Dates: start: 20051028, end: 20051028
  5. FLUCONAZOLE [Concomitant]
     Indication: ORAL CANDIDIASIS
     Route: 048
     Dates: start: 20051028, end: 20051104
  6. METRONIDAZOLE [Concomitant]
     Indication: TOOTH INFECTION
     Route: 048
     Dates: start: 20051004, end: 20051011
  7. IBUPROFEN [Concomitant]
     Indication: PAIN
     Dates: start: 20051004, end: 20051011

REACTIONS (5)
  - DEPRESSED MOOD [None]
  - DIZZINESS [None]
  - HALLUCINATION [None]
  - PARANOIA [None]
  - TEARFULNESS [None]
